FAERS Safety Report 7428366-9 (Version None)
Quarter: 2011Q2

REPORT INFORMATION
  Report Type: 
  Country: None (occurrence: None)
  Receive Date: 20110412
  Receipt Date: 20110406
  Transmission Date: 20111010
  Serious: Yes (Life-Threatening, Hospitalization)
  Sender: FDA-Public Use
  Company Number: 2011SP015320

PATIENT
  Age: 85 Year
  Sex: Male

DRUGS (10)
  1. ACETAMINOPHEN [Concomitant]
  2. SINTROM [Suspect]
     Indication: ANTICOAGULANT THERAPY
     Dosage: 2 MG QD PO
     Route: 048
     Dates: end: 20110301
  3. AVODART [Concomitant]
  4. FORLAX [Concomitant]
  5. ZOCOR [Concomitant]
  6. VESICARE [Concomitant]
  7. ACETAMINOPHEN AND TRAMADOL HCL [Concomitant]
  8. ORGARAN [Suspect]
     Dosage: SC; 2000 IU, BID, SC
     Route: 058
     Dates: start: 20110304
  9. ORGARAN [Suspect]
     Dosage: SC; 2000 IU, BID, SC
     Route: 058
     Dates: start: 20100225, end: 20110301
  10. TAREG [Concomitant]

REACTIONS (15)
  - PYELOCALIECTASIS [None]
  - CONDITION AGGRAVATED [None]
  - ABDOMINAL WALL HAEMATOMA [None]
  - INTERNATIONAL NORMALISED RATIO DECREASED [None]
  - HAEMODYNAMIC INSTABILITY [None]
  - CARDIAC FAILURE [None]
  - MONOPLEGIA [None]
  - ATRIAL FIBRILLATION [None]
  - RETROPERITONEAL HAEMORRHAGE [None]
  - NERVE COMPRESSION [None]
  - COGNITIVE DISORDER [None]
  - MALNUTRITION [None]
  - RENAL FAILURE ACUTE [None]
  - HAEMOLYSIS [None]
  - HYPERKALAEMIA [None]
